FAERS Safety Report 14895203 (Version 1)
Quarter: 2018Q2

REPORT INFORMATION
  Report Type: Spontaneous
  Country: US (occurrence: US)
  Receive Date: 20180515
  Receipt Date: 20180515
  Transmission Date: 20180711
  Serious: No
  Sender: FDA-Public Use
  Company Number: US-PFIZER INC-2018196479

PATIENT
  Age: 49 Year
  Sex: Male
  Weight: 104 kg

DRUGS (9)
  1. T4 [Concomitant]
     Active Substance: LEVOTHYROXINE
     Indication: HYPOTHYROIDISM
     Dosage: 175 UG, DAILY
     Route: 048
  2. LACTOBACILLUS [Concomitant]
     Active Substance: LACTOBACILLUS ACIDOPHILUS
     Indication: ADIPOSIS DOLOROSA
     Dosage: 1 DF, DAILY
     Route: 048
  3. METFORMIN [Concomitant]
     Active Substance: METFORMIN HYDROCHLORIDE
     Indication: METABOLIC SYNDROME
     Dosage: 500 MG, 1X/DAY
     Route: 048
     Dates: start: 201707
  4. LYRICA [Suspect]
     Active Substance: PREGABALIN
     Indication: ADIPOSIS DOLOROSA
     Dosage: 150 MG, 3X/DAY
     Route: 048
  5. OXYCODONE [Concomitant]
     Active Substance: OXYCODONE
     Indication: ADIPOSIS DOLOROSA
     Dosage: 20 MG, AS NEEDED UP TO THREE TIMES A DAY-PROBABLY TAKEN AT LEAST TWICE DAILY
     Route: 048
  6. COLLAGEN [Concomitant]
     Active Substance: COLLAGEN
     Indication: ADIPOSIS DOLOROSA
     Dosage: 200 MG, 1X/DAY
     Route: 048
  7. TESTOSTERONE CIPIONATE [Suspect]
     Active Substance: TESTOSTERONE
     Indication: ADIPOSIS DOLOROSA
     Dosage: 1.5 ML, EVERY TWO WEEKS
     Route: 030
  8. NALTREXONE [Concomitant]
     Active Substance: NALTREXONE
     Indication: ADIPOSIS DOLOROSA
     Dosage: 8 UG, 1X/DAY
     Route: 048
  9. CARNITINE [Concomitant]
     Active Substance: CARNITINE
     Indication: ADIPOSIS DOLOROSA
     Dosage: 500 MG, 1X/DAY
     Route: 048

REACTIONS (1)
  - Drug ineffective for unapproved indication [Unknown]
